FAERS Safety Report 21045412 (Version 5)
Quarter: 2022Q4

REPORT INFORMATION
  Report Type: Report from Study
  Country: US (occurrence: US)
  Receive Date: 20220706
  Receipt Date: 20221118
  Transmission Date: 20230113
  Serious: Yes (Other)
  Sender: FDA-Public Use
  Company Number: US-NOVARTISTESTPH-NVSC2022US149660

PATIENT
  Sex: Female

DRUGS (1)
  1. GLEEVEC [Suspect]
     Active Substance: IMATINIB MESYLATE
     Indication: Philadelphia positive chronic myeloid leukaemia
     Dosage: UNK
     Route: 048

REACTIONS (4)
  - Intestinal haemorrhage [Unknown]
  - Drug ineffective [Unknown]
  - Intestinal mucosal tear [Unknown]
  - Rash [Unknown]
